FAERS Safety Report 9326585 (Version 1)
Quarter: 2013Q2

REPORT INFORMATION
  Report Type: Spontaneous
  Country: FR (occurrence: None)
  Receive Date: 20130530
  Receipt Date: 20130530
  Transmission Date: 20140414
  Serious: Yes (Hospitalization)
  Sender: FDA-Public Use
  Company Number: SYM-2013-04076

PATIENT
  Age: 58 Year
  Sex: 0

DRUGS (11)
  1. FLAGYL [Suspect]
     Route: 048
     Dates: start: 20130116, end: 20130123
  2. AUGMENTIN [Suspect]
     Route: 048
     Dates: start: 20121207, end: 20121214
  3. CELESTENE [Suspect]
     Route: 048
     Dates: start: 20130116, end: 20130123
  4. CODEINE (CODEINE) (CODEINE) [Suspect]
     Route: 048
     Dates: start: 20130116, end: 20130123
  5. OLMETEC (OLMESARTAN MEDOXOMIL) (OLMESTARTAN MEDOXOMIL) [Concomitant]
  6. ACETYLSALICYCLIC ACID/PRAVASTIN SODIUM [Concomitant]
  7. IBUPROFEN (IBUPROFEN) (IBURPROFEN) [Concomitant]
  8. ANTINFL. PREP NON-STERIODS FOR TOPICAL USE (ANTIINFLAMMATORY PREPARTIONS, NON-STERIODS F) (NULL) [Concomitant]
  9. ALL OTHER THERAPEUTIC PRODUCTS (ALL OTHER THERAPEUTIC PRODUCTS) [Concomitant]
  10. MACROLIDES (MACROLIDES) [Concomitant]
  11. PROTON PUMP INHIBITIORS (PROTON PUMP INHIBITORS) [Concomitant]

REACTIONS (2)
  - Hepatitis cholestatic [None]
  - Granulomatous liver disease [None]
